FAERS Safety Report 16993549 (Version 2)
Quarter: 2020Q1

REPORT INFORMATION
  Report Type: Report from Study
  Country: FR (occurrence: FR)
  Receive Date: 20191105
  Receipt Date: 20200207
  Transmission Date: 20200409
  Serious: Yes (Hospitalization, Other)
  Sender: FDA-Public Use
  Company Number: FR-ROCHE-2291843

PATIENT
  Age: 26 Year
  Sex: Male
  Weight: 78 kg

DRUGS (23)
  1. PREGABALINE [Concomitant]
     Active Substance: PREGABALIN
     Route: 048
     Dates: start: 20181207, end: 20190414
  2. PREGABALINE [Concomitant]
     Active Substance: PREGABALIN
     Route: 048
     Dates: start: 20190415
  3. PARACETAMOL [Concomitant]
     Active Substance: ACETAMINOPHEN
     Route: 048
     Dates: start: 20190206, end: 20190206
  4. SILODOSINE [Concomitant]
     Active Substance: SILODOSIN
     Route: 048
     Dates: start: 20181212
  5. PARACETAMOL [Concomitant]
     Active Substance: ACETAMINOPHEN
     Indication: HEADACHE
     Route: 048
  6. COLECALCIFEROL [Concomitant]
     Active Substance: CHOLECALCIFEROL
     Indication: PROPHYLAXIS
     Route: 048
     Dates: start: 20190322
  7. TRAMADOL. [Concomitant]
     Active Substance: TRAMADOL
     Route: 048
     Dates: start: 20191010, end: 20191010
  8. OCRELIZUMAB. [Suspect]
     Active Substance: OCRELIZUMAB
     Indication: RELAPSING MULTIPLE SCLEROSIS
     Dosage: AN INITIAL DOSE OF TWO 300 MG INFUSIONS OF OCRELIZUMAB EACH SEPARATED BY 14 DAYS FOLLOWED BY ONE SIN
     Route: 042
     Dates: start: 20190205
  9. DICLOFENAC [Concomitant]
     Active Substance: DICLOFENAC
     Dosage: DOSE: 1 OTHER
     Route: 062
     Dates: start: 20190121
  10. MACROGOL 4000 [Concomitant]
     Active Substance: POLYETHYLENE GLYCOL 4000
     Route: 048
     Dates: start: 20180609
  11. PARACETAMOL [Concomitant]
     Active Substance: ACETAMINOPHEN
     Route: 048
     Dates: start: 20190209, end: 20190212
  12. PARACETAMOL [Concomitant]
     Active Substance: ACETAMINOPHEN
     Route: 048
     Dates: start: 20190309, end: 20190312
  13. POLARAMINE [Concomitant]
     Active Substance: DEXCHLORPHENIRAMINE MALEATE
     Route: 042
     Dates: start: 20190205, end: 20190205
  14. CETIRIZINE [Concomitant]
     Active Substance: CETIRIZINE HYDROCHLORIDE
     Route: 048
  15. EDUCTYL [Concomitant]
     Active Substance: POTASSIUM BITARTRATE\SODIUM BICARBONATE
     Dosage: DOSE: 1 (OTHER)
     Route: 054
     Dates: start: 20181207
  16. MELATONINE [Concomitant]
     Active Substance: MELATONIN
     Route: 065
     Dates: start: 20190212, end: 20190212
  17. ACUPAN [Concomitant]
     Active Substance: NEFOPAM HYDROCHLORIDE
     Route: 030
     Dates: start: 20190209, end: 20190212
  18. KETOPROFENE [KETOPROFEN] [Concomitant]
     Active Substance: KETOPROFEN
     Route: 048
     Dates: start: 20190121, end: 20190303
  19. FUNGIZONE [Concomitant]
     Active Substance: AMPHOTERICIN B
     Route: 060
     Dates: start: 20191017
  20. PARACETAMOL [Concomitant]
     Active Substance: ACETAMINOPHEN
     Route: 048
     Dates: start: 20191010, end: 20191010
  21. PARACETAMOL [Concomitant]
     Active Substance: ACETAMINOPHEN
     Route: 042
     Dates: start: 20190205, end: 20190205
  22. PARACETAMOL [Concomitant]
     Active Substance: ACETAMINOPHEN
     Route: 048
     Dates: start: 20190219, end: 20190219
  23. ACUPAN [Concomitant]
     Active Substance: NEFOPAM HYDROCHLORIDE
     Route: 030
     Dates: start: 20190206, end: 20190206

REACTIONS (2)
  - Peau d^orange [Recovered/Resolved]
  - Suicidal ideation [Recovered/Resolved]

NARRATIVE: CASE EVENT DATE: 20190312
